FAERS Safety Report 8187467 (Version 3)
Quarter: 2012Q4

REPORT INFORMATION
  Report Type: 
  Country: US (occurrence: US)
  Receive Date: 20111018
  Receipt Date: 20121105
  Transmission Date: 20130627
  Serious: No
  Sender: FDA-Public Use
  Company Number: US-ASTRAZENECA-2011SE10086

PATIENT
  Age: 55 Year
  Sex: Female

DRUGS (3)
  1. SYMBICORT PMDI [Suspect]
     Indication: ASTHMA
     Dosage: 80/4.5 MCG, TWO PUFFS, TWICE DAILY
     Route: 055
  2. NEXIUM [Suspect]
     Route: 048
  3. SEROQUEL XR [Suspect]
     Route: 048

REACTIONS (4)
  - Therapeutic response increased [Unknown]
  - Memory impairment [Unknown]
  - Multiple allergies [Unknown]
  - Depression [Unknown]
